FAERS Safety Report 10580649 (Version 1)
Quarter: 2014Q4

REPORT INFORMATION
  Report Type: Report from Study
  Country: US (occurrence: US)
  Receive Date: 20141113
  Receipt Date: 20141113
  Transmission Date: 20150529
  Serious: Yes (Hospitalization)
  Sender: FDA-Public Use
  Company Number: US-BRISTOL-MYERS SQUIBB COMPANY-21581095

PATIENT
  Age: 79 Year
  Sex: Male
  Weight: 97.3 kg

DRUGS (14)
  1. IRON SULFATE [Concomitant]
     Active Substance: FERROUS SULFATE ANHYDROUS
  2. TAMSULOSIN [Concomitant]
     Active Substance: TAMSULOSIN
  3. METFORMIN [Concomitant]
     Active Substance: METFORMIN HYDROCHLORIDE
  4. FLOMAX [Concomitant]
     Active Substance: TAMSULOSIN HYDROCHLORIDE
  5. METHYLPREDNISOLONE. [Concomitant]
     Active Substance: METHYLPREDNISOLONE
  6. IPILIMUMAB [Suspect]
     Active Substance: IPILIMUMAB
     Indication: METASTATIC MALIGNANT MELANOMA
     Dosage: 10540MG EVERY 3 MONTHS
     Route: 042
     Dates: start: 20140212, end: 20140730
  7. LASIX [Concomitant]
     Active Substance: FUROSEMIDE
  8. ONDANSETRON [Concomitant]
     Active Substance: ONDANSETRON
  9. NORVASC [Concomitant]
     Active Substance: AMLODIPINE BESYLATE
  10. LISINOPRIL. [Concomitant]
     Active Substance: LISINOPRIL
  11. OMEPRAZOLE. [Concomitant]
     Active Substance: OMEPRAZOLE
  12. ACETAMINOPHEN + HYDROCODONE [Concomitant]
     Active Substance: ACETAMINOPHEN\HYDROCODONE
  13. METOPROLOL [Concomitant]
     Active Substance: METOPROLOL
  14. PRADAXA [Concomitant]
     Active Substance: DABIGATRAN ETEXILATE MESYLATE

REACTIONS (1)
  - Cerebrovascular accident [Unknown]

NARRATIVE: CASE EVENT DATE: 20140917
